FAERS Safety Report 6263422-2 (Version None)
Quarter: 2009Q3

REPORT INFORMATION
  Report Type: 
  Country: None (occurrence: None)
  Receive Date: 20090710
  Receipt Date: 20081231
  Transmission Date: 20100115
  Serious: No
  Sender: FDA-Public Use
  Company Number: A0762081A

PATIENT
  Age: 59 Year
  Sex: Male

DRUGS (18)
  1. FLOVENT [Suspect]
     Indication: ASTHMA
     Dosage: 2PUFF TWICE PER DAY
     Route: 055
     Dates: start: 20081221
  2. TETRACYCLINE [Concomitant]
  3. TRENTAL [Concomitant]
  4. SINGULAIR [Concomitant]
  5. NAPROXEN [Concomitant]
  6. PRILOSEC [Concomitant]
  7. BENICAR [Concomitant]
  8. INSULIN [Concomitant]
  9. ALBUTEROL [Concomitant]
  10. VITAMIN B COMPLEX CAP [Concomitant]
  11. L-CARNITINE [Concomitant]
  12. VITAMIN E [Concomitant]
  13. COENZYME Q10 [Concomitant]
  14. RIBOFLAVIN TAB [Concomitant]
  15. NIACIN [Concomitant]
  16. ASCORBIC ACID [Concomitant]
  17. WELCHOL [Concomitant]
  18. FISH OIL [Concomitant]

REACTIONS (1)
  - BLOOD GLUCOSE INCREASED [None]
